FAERS Safety Report 10155865 (Version 1)
Quarter: 2014Q2

REPORT INFORMATION
  Report Type: Spontaneous
  Country: GB (occurrence: GB)
  Receive Date: 20140506
  Receipt Date: 20140506
  Transmission Date: 20141212
  Serious: Yes (Disabling, Other)
  Sender: FDA-Public Use
  Company Number: GB-ACTAVISPR-2014-08915

PATIENT
  Age: 40 Year
  Sex: Female

DRUGS (3)
  1. PROPRANOLOL [Suspect]
     Indication: PALPITATIONS
     Dosage: UNK UNK, UNK
     Route: 065
     Dates: start: 201401
  2. PROPRANOLOL [Suspect]
     Dosage: 10 MG, UNKNOWN
     Route: 065
     Dates: start: 2003
  3. AMITRIPTYLINE [Concomitant]
     Indication: PRODUCT USED FOR UNKNOWN INDICATION
     Dosage: UNK UNK, UNKNOWN
     Route: 065

REACTIONS (8)
  - Gait disturbance [Unknown]
  - Vertigo [Unknown]
  - Malaise [Unknown]
  - Heart rate increased [Unknown]
  - Panic reaction [Unknown]
  - Abdominal discomfort [Unknown]
  - Drug ineffective [Unknown]
  - Palpitations [Unknown]
